FAERS Safety Report 5186465-9 (Version None)
Quarter: 2006Q4

REPORT INFORMATION
  Report Type: 
  Country: None (occurrence: None)
  Receive Date: 20061220
  Receipt Date: 20061212
  Transmission Date: 20070319
  Serious: Yes (Hospitalization)
  Sender: FDA-Public Use
  Company Number: HK-BOEHRINGER INGELHEIM GMBH, GERMANY-2006-DE-06643GD

PATIENT
  Age: 7 Year
  Sex: Female

DRUGS (7)
  1. BUSCOPAN [Suspect]
     Indication: GASTROENTERITIS
  2. LOPERAMIDE HYDROCHLORIDE [Suspect]
     Indication: GASTROENTERITIS
  3. HOLOPON [Suspect]
     Indication: GASTROENTERITIS
  4. LOMOTIL [Suspect]
     Indication: GASTROENTERITIS
  5. PIRITON [Suspect]
     Indication: GASTROENTERITIS
  6. DIMETHICONE [Concomitant]
     Indication: GASTROENTERITIS
  7. ACETAMINOPHEN [Concomitant]
     Indication: GASTROENTERITIS

REACTIONS (22)
  - ABDOMINAL PAIN [None]
  - ACCIDENTAL POISONING [None]
  - ANTICHOLINERGIC SYNDROME [None]
  - APPETITE DISORDER [None]
  - BLOOD CREATININE INCREASED [None]
  - BODY TEMPERATURE INCREASED [None]
  - BOWEL SOUNDS ABNORMAL [None]
  - CONFUSIONAL STATE [None]
  - DEHYDRATION [None]
  - DEPRESSED LEVEL OF CONSCIOUSNESS [None]
  - DIARRHOEA [None]
  - GASTROENTERITIS [None]
  - ILEUS [None]
  - MUCOSAL DRYNESS [None]
  - MYDRIASIS [None]
  - PHARYNGOLARYNGEAL PAIN [None]
  - PYREXIA [None]
  - RHINORRHOEA [None]
  - SOMNOLENCE [None]
  - TACHYCARDIA [None]
  - TACHYPNOEA [None]
  - VOMITING [None]
